FAERS Safety Report 14480202 (Version 1)
Quarter: 2018Q1

REPORT INFORMATION
  Report Type: Spontaneous
  Country: US (occurrence: US)
  Receive Date: 20180201
  Receipt Date: 20180201
  Transmission Date: 20180509
  Serious: Yes (Hospitalization)
  Sender: FDA-Public Use
  Company Number: None

PATIENT
  Age: 77 Year
  Sex: Male

DRUGS (3)
  1. GLIPIZIDE ER [Suspect]
     Active Substance: GLIPIZIDE
  2. SITAGLIPTIN [Concomitant]
     Active Substance: SITAGLIPTIN
  3. METFORMIN [Concomitant]
     Active Substance: METFORMIN HYDROCHLORIDE

REACTIONS (2)
  - Hyperglycaemia [None]
  - Hypoglycaemia [None]
